FAERS Safety Report 4284935-9 (Version None)
Quarter: 2004Q1

REPORT INFORMATION
  Report Type: 
  Country: None (occurrence: None)
  Receive Date: 20040202
  Receipt Date: 20040121
  Transmission Date: 20041129
  Serious: Yes (Hospitalization)
  Sender: FDA-Public Use
  Company Number: US-JNJFOC-20031005892

PATIENT
  Age: 79 Year
  Sex: Female
  Weight: 55.3388 kg

DRUGS (10)
  1. DURAGESIC [Suspect]
     Indication: PAIN
     Dosage: SEE IMAGE
     Route: 062
     Dates: start: 20030901
  2. LISINOPRIL (LISINOPRIL)  TABLETS [Concomitant]
  3. PROMETHAZINE [Concomitant]
  4. ATENOLOL (ATENOLOL) TABLETS [Concomitant]
  5. ELAVIL (AMITRIPTYLINE HYDROCHLORIDE)  TABLETS [Concomitant]
  6. HYDROCODONE WITH ACETAMINOHEN (HYDROCODONE) TABLETS [Concomitant]
  7. PRILOSEC [Concomitant]
  8. REMERON [Concomitant]
  9. ESTROGEN (ESTROGEN NOS) [Concomitant]
  10. FLEXERIL (CYCLOBENZAPARINE HYDROCHLORIDE) [Concomitant]

REACTIONS (6)
  - DIARRHOEA [None]
  - NAUSEA [None]
  - PNEUMONIA [None]
  - PYREXIA [None]
  - VOMITING [None]
  - WEIGHT DECREASED [None]
